FAERS Safety Report 13746379 (Version 1)
Quarter: 2017Q3

REPORT INFORMATION
  Report Type: Spontaneous
  Country: AU (occurrence: AU)
  Receive Date: 20170712
  Receipt Date: 20170712
  Transmission Date: 20171127
  Serious: Yes (Other)
  Sender: FDA-Public Use
  Company Number: AU-SA-2017SA123653

PATIENT
  Sex: Male

DRUGS (1)
  1. KARVEA [Suspect]
     Active Substance: IRBESARTAN
     Route: 048

REACTIONS (1)
  - Gastrointestinal disorder [Unknown]
